FAERS Safety Report 16229192 (Version 2)
Quarter: 2020Q2

REPORT INFORMATION
  Report Type: Spontaneous
  Country: IT (occurrence: IT)
  Receive Date: 20190423
  Receipt Date: 20200401
  Transmission Date: 20200713
  Serious: Yes (Other)
  Sender: FDA-Public Use
  Company Number: IT-PFIZER INC-2019165741

PATIENT
  Age: 71 Year
  Sex: Male
  Weight: 58 kg

DRUGS (9)
  1. LEVOFLOXACIN. [Concomitant]
     Active Substance: LEVOFLOXACIN
     Indication: PULMONARY OEDEMA
     Dosage: UNK
  2. LEVOFLOXACIN. [Concomitant]
     Active Substance: LEVOFLOXACIN
     Indication: PLEURAL EFFUSION
  3. PIPERACILLIN AND TAZOBACTAM [Concomitant]
     Active Substance: PIPERACILLIN SODIUM\TAZOBACTAM SODIUM
     Indication: PULMONARY OEDEMA
     Dosage: UNK
  4. DABIGATRAN [Interacting]
     Active Substance: DABIGATRAN
     Dosage: UNK
  5. PIPERACILLIN AND TAZOBACTAM [Concomitant]
     Active Substance: PIPERACILLIN SODIUM\TAZOBACTAM SODIUM
     Indication: PLEURAL EFFUSION
  6. PIPERACILLIN AND TAZOBACTAM [Concomitant]
     Active Substance: PIPERACILLIN SODIUM\TAZOBACTAM SODIUM
     Indication: EVIDENCE BASED TREATMENT
  7. XARELTO [Suspect]
     Active Substance: RIVAROXABAN
     Indication: ATRIAL FIBRILLATION
     Dosage: UNK
  8. EDOXABAN [Interacting]
     Active Substance: EDOXABAN TOSYLATE
     Indication: ANTICOAGULANT THERAPY
     Dosage: 30 MG, QD (CRUSHED PILL)
  9. LEVOFLOXACIN. [Concomitant]
     Active Substance: LEVOFLOXACIN
     Indication: EVIDENCE BASED TREATMENT

REACTIONS (4)
  - Labelled drug-drug interaction medication error [Unknown]
  - Haematuria [Unknown]
  - International normalised ratio abnormal [Unknown]
  - Product administration error [Unknown]
